FAERS Safety Report 24403957 (Version 1)
Quarter: 2024Q4

REPORT INFORMATION
  Report Type: Spontaneous
  Country: US (occurrence: US)
  Receive Date: 20241007
  Receipt Date: 20241007
  Transmission Date: 20250115
  Serious: No
  Sender: RANBAXY
  Company Number: US-SUN PHARMACEUTICAL INDUSTRIES LTD-2024R1-458299

PATIENT
  Age: 86 Year
  Sex: Female

DRUGS (1)
  1. CEQUA [Suspect]
     Active Substance: CYCLOSPORINE
     Indication: Product used for unknown indication
     Dosage: UNKOWN
     Route: 047

REACTIONS (8)
  - Hypersensitivity [Unknown]
  - Eye irritation [Unknown]
  - Eye pruritus [Unknown]
  - Eyelid rash [Unknown]
  - Skin discolouration [Unknown]
  - Eye discharge [Unknown]
  - Eye inflammation [Not Recovered/Not Resolved]
  - Ocular hyperaemia [Unknown]

NARRATIVE: CASE EVENT DATE: 20240522
